FAERS Safety Report 23673969 (Version 1)
Quarter: 2024Q1

REPORT INFORMATION
  Report Type: Spontaneous
  Country: CN (occurrence: CN)
  Receive Date: 20240326
  Receipt Date: 20240326
  Transmission Date: 20240410
  Serious: Yes (Other)
  Sender: FDA-Public Use
  Company Number: CN-PFIZER INC-PV202400040145

PATIENT
  Age: 83 Year
  Sex: Male
  Weight: 77 kg

DRUGS (2)
  1. DIFLUCAN [Suspect]
     Active Substance: FLUCONAZOLE
     Indication: Infection
     Dosage: 400 MG, 1X/DAY
     Route: 041
     Dates: start: 20240221, end: 20240226
  2. DIFLUCAN [Suspect]
     Active Substance: FLUCONAZOLE
     Indication: Fungal infection

REACTIONS (10)
  - Rash [Recovering/Resolving]
  - Pruritus [Recovering/Resolving]
  - Erythema [Recovering/Resolving]
  - Skin fissures [Recovering/Resolving]
  - Dry skin [Recovering/Resolving]
  - Skin exfoliation [Recovering/Resolving]
  - Scrotal erythema [Recovering/Resolving]
  - Penile erythema [Recovering/Resolving]
  - Scrotal swelling [Recovering/Resolving]
  - Penile swelling [Recovering/Resolving]

NARRATIVE: CASE EVENT DATE: 20240224
